FAERS Safety Report 20577152 (Version 1)
Quarter: 2022Q1

REPORT INFORMATION
  Report Type: Report from Study
  Country: US (occurrence: US)
  Receive Date: 20220310
  Receipt Date: 20220310
  Transmission Date: 20220423
  Serious: Yes (Hospitalization)
  Sender: FDA-Public Use
  Company Number: US-JCAR017-FOL-001-1141003-20220131-0001SG

PATIENT
  Age: 70 Year
  Sex: Female
  Weight: 67 kg

DRUGS (9)
  1. LISOCABTAGENE MARALEUCEL [Suspect]
     Active Substance: LISOCABTAGENE MARALEUCEL
     Indication: Follicular lymphoma
     Dosage: 100 10^6 CAR+ T CELLS X ONCE
     Route: 042
     Dates: start: 20220118, end: 20220118
  2. CYCLOPHOSPHAMIDE [Suspect]
     Active Substance: CYCLOPHOSPHAMIDE
     Indication: Follicular lymphoma
     Dosage: 546 MG X ONCE
     Route: 042
     Dates: start: 20220112, end: 20220112
  3. CYCLOPHOSPHAMIDE [Suspect]
     Active Substance: CYCLOPHOSPHAMIDE
     Dosage: 546 MG X ONCE
     Route: 042
     Dates: start: 20220113, end: 20220113
  4. CYCLOPHOSPHAMIDE [Suspect]
     Active Substance: CYCLOPHOSPHAMIDE
     Dosage: 546 MG X ONCE
     Route: 042
     Dates: start: 20220114, end: 20220114
  5. FLUDARABINE [Suspect]
     Active Substance: FLUDARABINE PHOSPHATE
     Indication: Follicular lymphoma
     Dosage: 43.68 MG X ONCE
     Route: 042
     Dates: start: 20220112, end: 20220112
  6. FLUDARABINE [Suspect]
     Active Substance: FLUDARABINE PHOSPHATE
     Dosage: 43.68 MG X ONCE
     Route: 042
     Dates: start: 20220113, end: 20220113
  7. FLUDARABINE [Suspect]
     Active Substance: FLUDARABINE PHOSPHATE
     Dosage: 32.76 MG X ONCE
     Route: 042
     Dates: start: 20220114, end: 20220114
  8. FAMOTIDINE [Concomitant]
     Active Substance: FAMOTIDINE
     Indication: Prophylaxis
     Dosage: 20 MG X 2 X 1 DAYS
     Route: 042
     Dates: start: 20220131
  9. LEVETIRACETAM [Concomitant]
     Active Substance: LEVETIRACETAM
     Indication: Prophylaxis
     Dosage: 1500 MG X ONCE
     Route: 042
     Dates: start: 20220130, end: 20220130

REACTIONS (1)
  - Neurotoxicity [Not Recovered/Not Resolved]

NARRATIVE: CASE EVENT DATE: 20220130
